FAERS Safety Report 7747395 (Version 4)
Quarter: 2013Q4

REPORT INFORMATION
  Report Type: Spontaneous
  Country: US (occurrence: US)
  Receive Date: 20110104
  Receipt Date: 20131227
  Transmission Date: 20140711
  Serious: Yes (Hospitalization, Other)
  Sender: FDA-Public Use
  Company Number: US-BAYER-2011-000229

PATIENT
  Age: 33 Year
  Sex: Female
  Weight: 86 kg

DRUGS (9)
  1. YASMIN [Suspect]
     Indication: ACNE
     Dosage: UNK
  2. GLUCOPHAGE [Concomitant]
     Indication: POLYCYSTIC OVARIES
     Dosage: 100 MG, UNK
  3. MIDRIN [Concomitant]
     Indication: MIGRAINE
  4. ATENOLOL [Concomitant]
  5. PROAIR HFA [Concomitant]
     Dosage: UNK
  6. CHERATUSSIN AC [Concomitant]
     Dosage: UNK
  7. FEXOFENADINE HYDROCHLORIDE [Concomitant]
     Dosage: 180 MG, UNK
  8. CLARITHROMYCIN [Concomitant]
     Dosage: UNK
  9. MUCINEX [Concomitant]
     Dosage: UNK

REACTIONS (3)
  - Cholelithiasis [None]
  - Cholecystitis [None]
  - Gallbladder injury [Unknown]
